FAERS Safety Report 8384129-1 (Version None)
Quarter: 2012Q2

REPORT INFORMATION
  Report Type: 
  Country: None (occurrence: None)
  Receive Date: 20120524
  Receipt Date: 20120514
  Transmission Date: 20120825
  Serious: Yes (Other)
  Sender: FDA-Public Use
  Company Number: TR-ROCHE-1070080

PATIENT
  Age: 54 Year
  Sex: Female

DRUGS (3)
  1. AVASTIN [Suspect]
     Indication: GLIOBLASTOMA MULTIFORME
     Dosage: TOTAL DOSE: 900 MG/DAY
  2. TEMOZOLOMIDE [Concomitant]
     Indication: GLIOBLASTOMA MULTIFORME
  3. TEMOZOLOMIDE [Concomitant]
     Dosage: 5 DAYS FOR EVERY 4 WEEKS

REACTIONS (2)
  - OPTIC ATROPHY [None]
  - BLINDNESS [None]
